FAERS Safety Report 5391618-0 (Version None)
Quarter: 2007Q3

REPORT INFORMATION
  Report Type: 
  Country: None (occurrence: None)
  Receive Date: 20070717
  Receipt Date: 20070703
  Transmission Date: 20080115
  Serious: Yes (Hospitalization)
  Sender: FDA-Public Use
  Company Number: B0476765A

PATIENT
  Age: 27 Year
  Sex: Male

DRUGS (7)
  1. CHLORPROMAZINE HCL [Suspect]
     Dosage: SEE DOSAGE TEXT / ORAL
     Route: 048
  2. RISPERIDONE [Suspect]
     Dosage: SEE DOSAGE TEXT / ORAL
     Route: 048
  3. ZOTEPINE TABLET (ZOTEPINE) [Suspect]
     Dosage: SEE DOSAGE TEXT / ORAL
     Route: 048
  4. VALPROIC ACID [Concomitant]
  5. BETHANECHOL CHLORIDE [Concomitant]
  6. BROTIZOLAM [Concomitant]
  7. FLUNITRAZEPAM [Concomitant]

REACTIONS (11)
  - BLOOD CREATINE INCREASED [None]
  - BLOOD CREATINE PHOSPHOKINASE INCREASED [None]
  - BLOOD LACTATE DEHYDROGENASE INCREASED [None]
  - DEPRESSED LEVEL OF CONSCIOUSNESS [None]
  - HAEMATOCRIT DECREASED [None]
  - HYPOKALAEMIA [None]
  - METABOLIC ACIDOSIS [None]
  - MULTIPLE DRUG OVERDOSE [None]
  - RESPIRATORY RATE INCREASED [None]
  - SHOCK [None]
  - TONGUE DISORDER [None]
